FAERS Safety Report 4362745-1 (Version None)
Quarter: 2004Q2

REPORT INFORMATION
  Report Type: 
  Country: None (occurrence: None)
  Receive Date: 20040517
  Receipt Date: 20040331
  Transmission Date: 20050107
  Serious: No
  Sender: FDA-Public Use
  Company Number: S04-USA-02038-01

PATIENT
  Age: 57 Year
  Sex: Male

DRUGS (10)
  1. NAMENDA [Suspect]
     Indication: COGNITIVE DISORDER
     Dosage: 20 MG QD PO
     Route: 048
     Dates: start: 20040329
  2. NAMENDA [Suspect]
     Indication: COGNITIVE DISORDER
     Dosage: 5 MG QD PO
     Route: 048
     Dates: start: 20040308, end: 20040314
  3. NAMENDA [Suspect]
     Indication: COGNITIVE DISORDER
     Dosage: 10 MG QD PO
     Route: 048
     Dates: start: 20040315, end: 20040321
  4. NAMENDA [Suspect]
     Indication: COGNITIVE DISORDER
     Dosage: 10 MG QD PO
     Route: 048
     Dates: start: 20040322, end: 20040328
  5. PAROXETINE HCL [Concomitant]
  6. DILANTIN [Concomitant]
  7. LIPITOR [Concomitant]
  8. SYNTHROID [Concomitant]
  9. BACLOFEN [Concomitant]
  10. FUROSEMIDE [Concomitant]

REACTIONS (2)
  - INSOMNIA [None]
  - WEIGHT DECREASED [None]
